FAERS Safety Report 7428733-3 (Version None)
Quarter: 2011Q2

REPORT INFORMATION
  Report Type: 
  Country: None (occurrence: None)
  Receive Date: 20110421
  Receipt Date: 20110413
  Transmission Date: 20111010
  Serious: Yes (Death, Hospitalization)
  Sender: FDA-Public Use
  Company Number: AT-SANOFI-AVENTIS-2011SA003987

PATIENT
  Age: 66 Year
  Sex: Male
  Weight: 69.1 kg

DRUGS (20)
  1. IRINOTECAN HCL [Suspect]
     Indication: GASTRIC CANCER
     Route: 041
     Dates: start: 20101129, end: 20101129
  2. HALCION [Concomitant]
     Dates: start: 20110124, end: 20110124
  3. SOLUTIONS FOR PARENTERAL NUTRITION [Concomitant]
     Dates: start: 20110120, end: 20110124
  4. ELOXATIN [Suspect]
     Route: 041
     Dates: start: 20110119, end: 20110119
  5. AVASTIN [Suspect]
     Route: 041
     Dates: start: 20110119, end: 20110119
  6. IRINOTECAN HCL [Suspect]
     Route: 041
     Dates: start: 20110119, end: 20110119
  7. PANTOPRAZOLE [Concomitant]
     Dates: start: 20110131
  8. LACTULOSE [Concomitant]
     Dosage: 1-2 SPOONS
     Dates: start: 20101129
  9. BIPERIDEN [Concomitant]
     Dates: start: 20110120, end: 20110120
  10. ELOXATIN [Suspect]
     Indication: GASTRIC CANCER
     Route: 041
     Dates: start: 20101129, end: 20101129
  11. MOTILIUM [Concomitant]
     Dates: start: 20101129
  12. LEXOTANIL [Concomitant]
     Dates: start: 20110120, end: 20110124
  13. PANTOPRAZOLE [Concomitant]
     Dates: start: 20101117
  14. AVASTIN [Suspect]
     Indication: GASTRIC CANCER
     Route: 041
     Dates: start: 20101129, end: 20101129
  15. HYDAL [Concomitant]
     Dates: start: 20101126
  16. HYDAL [Concomitant]
     Dates: start: 20101126
  17. NAVOBAN [Concomitant]
     Dates: start: 20101129
  18. FRAGMIN [Concomitant]
     Dates: start: 20101123
  19. HYDAL [Concomitant]
     Dates: start: 20101212
  20. MOTILIUM [Concomitant]
     Dates: start: 20101202, end: 20110125

REACTIONS (5)
  - VOMITING [None]
  - NAUSEA [None]
  - LEFT VENTRICULAR FAILURE [None]
  - ABDOMINAL PAIN [None]
  - DIARRHOEA [None]
